FAERS Safety Report 8058716-4 (Version None)
Quarter: 2012Q1

REPORT INFORMATION
  Report Type: 
  Country: None (occurrence: None)
  Receive Date: 20120120
  Receipt Date: 20120106
  Transmission Date: 20120608
  Serious: Yes (Other)
  Sender: FDA-Public Use
  Company Number: FR-MYLANLABS-2012S1000951

PATIENT
  Age: 15 Year
  Sex: Male

DRUGS (1)
  1. ISOTRETINOIN [Suspect]
     Route: 065

REACTIONS (2)
  - SUICIDE ATTEMPT [None]
  - AGGRESSION [None]
